FAERS Safety Report 11300605 (Version 1)
Quarter: 2015Q3

REPORT INFORMATION
  Report Type: Spontaneous
  Country: US (occurrence: US)
  Receive Date: 20150722
  Receipt Date: 20150722
  Transmission Date: 20151125
  Serious: No
  Sender: FDA-Public Use
  Company Number: US-ELI_LILLY_AND_COMPANY-US201212002912

PATIENT
  Sex: Female

DRUGS (1)
  1. HUMATROPE [Suspect]
     Active Substance: SOMATROPIN
     Indication: HYPOPITUITARISM
     Dosage: 0.03 MG, UNKNOWN
     Route: 058

REACTIONS (4)
  - Confusional state [Unknown]
  - Mycotic allergy [Unknown]
  - Disorientation [Unknown]
  - Influenza like illness [Unknown]
